FAERS Safety Report 25143936 (Version 2)
Quarter: 2025Q4

REPORT INFORMATION
  Report Type: Spontaneous
  Country: EU (occurrence: EU)
  Receive Date: 20250401
  Receipt Date: 20251204
  Transmission Date: 20260118
  Serious: Yes (Hospitalization)
  Sender: SANDOZ
  Company Number: EU-ROCHE-3189292

PATIENT
  Age: 37 Year
  Sex: Female
  Weight: 57.8 kg

DRUGS (9)
  1. CARBOPLATIN [Suspect]
     Active Substance: CARBOPLATIN
     Indication: Breast cancer
     Dosage: 250 MG (LAST DOSE BEFORE SAE 30 MAR 2022)
     Route: 042
     Dates: start: 20220330, end: 20220330
  2. CARBOPLATIN [Suspect]
     Active Substance: CARBOPLATIN
     Dosage: UNK
     Route: 042
     Dates: start: 20220331
  3. CYCLOPHOSPHAMIDE [Suspect]
     Active Substance: CYCLOPHOSPHAMIDE
     Indication: Breast cancer
     Dosage: 960 MG (LAST DOSE BEFORE SAE 09 MAR 2022)
     Route: 042
     Dates: start: 20220126, end: 20220309
  4. EPIRUBICIN [Suspect]
     Active Substance: EPIRUBICIN
     Indication: Breast cancer
     Dosage: 144 MG (LAST DOSE BEFORE SAE 09 MAR 2022)
     Route: 042
     Dates: start: 20220126, end: 20220309
  5. PACLITAXEL [Suspect]
     Active Substance: PACLITAXEL
     Indication: Breast cancer
     Dosage: 144 MG (LAST DOSE BEFORE SAE 30 MAR 2022)
     Route: 042
     Dates: start: 20220330, end: 20220330
  6. PERTUZUMAB [Suspect]
     Active Substance: PERTUZUMAB
     Indication: Breast cancer
     Dosage: 480 MG (LAST DOSE BEFORE SAE 30 MAR 2022)
     Route: 042
     Dates: start: 20220330, end: 20220330
  7. TRASTUZUMAB [Suspect]
     Active Substance: TRASTUZUMAB
     Indication: Breast cancer
     Dosage: 480 MG (LAST DOSE BEFORE SAE 30/03/2022)
     Route: 042
     Dates: start: 20220330, end: 20220330
  8. ATEZOLIZUMAB [Concomitant]
     Active Substance: ATEZOLIZUMAB
     Indication: Breast cancer
     Dosage: 420 MG (LAST DOSE BEFORE SAE 30 MAR 2022)
     Route: 042
     Dates: start: 20220126, end: 20220406
  9. ATEZOLIZUMAB [Concomitant]
     Active Substance: ATEZOLIZUMAB
     Dosage: UNK
     Route: 042
     Dates: start: 20220331

REACTIONS (2)
  - Hypersensitivity [Recovered/Resolved]
  - Infusion related reaction [Recovered/Resolved]

NARRATIVE: CASE EVENT DATE: 20220330
